FAERS Safety Report 11140961 (Version 1)
Quarter: 2015Q2

REPORT INFORMATION
  Report Type: Spontaneous
  Country: US (occurrence: None)
  Receive Date: 20150526
  Receipt Date: 20150526
  Transmission Date: 20150821
  Serious: No
  Sender: FDA-Public Use
  Company Number: None

PATIENT
  Age: 65 Year
  Sex: Male
  Weight: 86.9 kg

DRUGS (2)
  1. CARBOPLATIN. [Suspect]
     Active Substance: CARBOPLATIN
     Dates: start: 20130515, end: 20130515
  2. PACLITAXEL. [Suspect]
     Active Substance: PACLITAXEL
     Dates: start: 20130515, end: 20130515

REACTIONS (8)
  - Heart rate increased [None]
  - Urticaria [None]
  - Chills [None]
  - Nausea [None]
  - Erythema [None]
  - Rash [None]
  - Hyperhidrosis [None]
  - Vomiting [None]

NARRATIVE: CASE EVENT DATE: 20130515
